FAERS Safety Report 26117567 (Version 1)
Quarter: 2025Q4

REPORT INFORMATION
  Report Type: Spontaneous
  Country: US (occurrence: US)
  Receive Date: 20251203
  Receipt Date: 20251203
  Transmission Date: 20260117
  Serious: No
  Sender: VERTEX
  Company Number: US-VERTEX PHARMACEUTICALS-2025-019966

PATIENT
  Age: 49 Year

DRUGS (2)
  1. SUZETRIGINE [Suspect]
     Active Substance: SUZETRIGINE
     Indication: Pain
     Dosage: 50MG, BID
     Dates: start: 20251101, end: 202511
  2. SUZETRIGINE [Suspect]
     Active Substance: SUZETRIGINE
     Dosage: 50MG, QD (NIGHT)
     Dates: start: 202511

REACTIONS (2)
  - Somnolence [Unknown]
  - Fatigue [Unknown]

NARRATIVE: CASE EVENT DATE: 20251101
